FAERS Safety Report 21202371 (Version 1)
Quarter: 2022Q3

REPORT INFORMATION
  Report Type: Spontaneous
  Country: GB (occurrence: GB)
  Receive Date: 20220811
  Receipt Date: 20220811
  Transmission Date: 20221027
  Serious: Yes (Other)
  Sender: FDA-Public Use
  Company Number: GB-BAYER-2022P009692

PATIENT

DRUGS (1)
  1. REGORAFENIB [Suspect]
     Active Substance: REGORAFENIB
     Indication: Cholangiocarcinoma
     Dosage: UNK
     Dates: end: 202203

REACTIONS (2)
  - Cholangiocarcinoma [None]
  - Off label use [None]
